FAERS Safety Report 7545524-3 (Version None)
Quarter: 2011Q2

REPORT INFORMATION
  Report Type: 
  Country: None (occurrence: None)
  Receive Date: 20110524
  Receipt Date: 20110214
  Transmission Date: 20111010
  Serious: No
  Sender: FDA-Public Use
  Company Number: 027446

PATIENT
  Sex: Female
  Weight: 49.9 kg

DRUGS (6)
  1. CIMZIA [Suspect]
     Indication: CROHN'S DISEASE
     Dosage: (UNKNOWN DOSE SUBCUTANEOUS) ; 400 MG 1X/MONTH SUBCUTANEOUS)
     Route: 058
     Dates: start: 20100720
  2. CIMZIA [Suspect]
     Indication: CROHN'S DISEASE
     Dosage: (UNKNOWN DOSE SUBCUTANEOUS) ; 400 MG 1X/MONTH SUBCUTANEOUS)
     Route: 058
     Dates: start: 20100916
  3. IMURAN [Concomitant]
  4. SUMATRIPTAN SUCCINATE [Concomitant]
  5. REGLAN [Concomitant]
  6. TIZANIDINE HCL [Concomitant]

REACTIONS (3)
  - PHARYNGITIS STREPTOCOCCAL [None]
  - PRODUCTIVE COUGH [None]
  - PYREXIA [None]
